FAERS Safety Report 17095659 (Version 2)
Quarter: 2019Q4

REPORT INFORMATION
  Report Type: Spontaneous
  Country: US (occurrence: US)
  Receive Date: 20191201
  Receipt Date: 20191224
  Transmission Date: 20200122
  Serious: No
  Sender: FDA-Public Use
  Company Number: US-VERTEX PHARMACEUTICALS-2019-011866

PATIENT
  Sex: Male

DRUGS (1)
  1. ORKAMBI [Suspect]
     Active Substance: IVACAFTOR\LUMACAFTOR
     Indication: CYSTIC FIBROSIS
     Dosage: 1 PACKET (150MG /188MG GRANULES), BID
     Route: 048

REACTIONS (2)
  - Infective pulmonary exacerbation of cystic fibrosis [Unknown]
  - Sinusitis [Not Recovered/Not Resolved]

NARRATIVE: CASE EVENT DATE: 2019
